FAERS Safety Report 21279748 (Version 1)
Quarter: 2022Q3

REPORT INFORMATION
  Report Type: Spontaneous
  Country: US (occurrence: US)
  Receive Date: 20220901
  Receipt Date: 20220901
  Transmission Date: 20221027
  Serious: Yes (Life-Threatening, Hospitalization, Other)
  Sender: FDA-Public Use
  Company Number: US-LUPIN PHARMACEUTICALS INC.-2022-10658

PATIENT
  Age: 5 Year
  Sex: Male

DRUGS (9)
  1. CEFDINIR [Suspect]
     Active Substance: CEFDINIR
     Indication: Pneumonia
     Dosage: UNK
     Route: 048
  2. AZITHROMYCIN [Suspect]
     Active Substance: AZITHROMYCIN
     Indication: Pneumonia
     Dosage: UNK
     Route: 048
  3. AZITHROMYCIN [Suspect]
     Active Substance: AZITHROMYCIN
     Dosage: UNK (THREE TIMES WEEKLY)
     Route: 048
  4. AMOXICILLIN [Suspect]
     Active Substance: AMOXICILLIN
     Indication: Pneumonia
     Dosage: UNK
     Route: 048
  5. FLUTICASONE FUROATE\SALMETEROL XINAFOATE [Suspect]
     Active Substance: FLUTICASONE FUROATE\SALMETEROL XINAFOATE
     Indication: Asthma
     Dosage: UNK
     Route: 065
  6. PREDNISOLONE [Suspect]
     Active Substance: PREDNISOLONE
     Indication: Asthma
     Dosage: UNK
     Route: 048
  7. CEFTRIAXONE [Concomitant]
     Active Substance: CEFTRIAXONE
     Indication: Pneumonia
     Dosage: 01 DOSAGE FORM, SINGLE
     Route: 030
  8. CEFTRIAXONE [Concomitant]
     Active Substance: CEFTRIAXONE
     Indication: Pneumonia
  9. MONTELUKAST [Concomitant]
     Active Substance: MONTELUKAST SODIUM
     Indication: Product used for unknown indication
     Dosage: UNK
     Route: 065

REACTIONS (6)
  - Treatment noncompliance [Unknown]
  - Pneumonia [Recovering/Resolving]
  - Pneumonia haemophilus [Recovering/Resolving]
  - Pneumonia moraxella [Recovering/Resolving]
  - Drug intolerance [Unknown]
  - Wrong technique in product usage process [Unknown]
